FAERS Safety Report 12359395 (Version 2)
Quarter: 2016Q2

REPORT INFORMATION
  Report Type: Spontaneous
  Country: IT (occurrence: IT)
  Receive Date: 20160512
  Receipt Date: 20160525
  Transmission Date: 20160815
  Serious: Yes (Hospitalization)
  Sender: FDA-Public Use
  Company Number: PHHY2016IT062555

PATIENT
  Age: 71 Year
  Sex: Female

DRUGS (3)
  1. FENOFIBRATE (MANUFACTURER UNKNOWN) [Concomitant]
     Indication: PRODUCT USED FOR UNKNOWN INDICATION
     Dosage: 1 DF,
     Route: 065
     Dates: start: 20160316, end: 20160323
  2. ALLOPURINOL. [Suspect]
     Active Substance: ALLOPURINOL
     Indication: HYPERURICAEMIA
     Dosage: 1 DF, QD
     Route: 048
     Dates: end: 20160318
  3. AUGMENTAN                          /00756801/ [Suspect]
     Active Substance: AMOXICILLIN\CLAVULANATE POTASSIUM
     Indication: CYSTITIS
     Dosage: 1 DF, BID
     Route: 048
     Dates: start: 20160318, end: 20160318

REACTIONS (1)
  - Dermatitis bullous [Recovering/Resolving]

NARRATIVE: CASE EVENT DATE: 20160318
